FAERS Safety Report 5676236-9 (Version None)
Quarter: 2008Q1

REPORT INFORMATION
  Report Type: 
  Country: None (occurrence: None)
  Receive Date: 20080321
  Receipt Date: 20080311
  Transmission Date: 20080703
  Serious: Yes (Hospitalization, Other)
  Sender: FDA-Public Use
  Company Number: US-PFIZER INC-2006025454

PATIENT
  Sex: Male
  Weight: 90.7 kg

DRUGS (6)
  1. LYRICA [Suspect]
     Indication: BURNING SENSATION
     Route: 065
  2. SYNTHROID [Concomitant]
     Route: 065
  3. ZYLOPRIM [Concomitant]
     Route: 065
  4. TRICOR [Concomitant]
     Route: 065
  5. PRAVACHOL [Concomitant]
     Route: 065
  6. IMITREX [Concomitant]
     Route: 065

REACTIONS (19)
  - ALOPECIA [None]
  - BORDERLINE GLAUCOMA [None]
  - BRONCHITIS [None]
  - CATARACT OPERATION [None]
  - COUGH [None]
  - DIZZINESS [None]
  - DRUG ADMINISTRATION ERROR [None]
  - DYSPNOEA [None]
  - FLUSHING [None]
  - GAIT DISTURBANCE [None]
  - INCREASED APPETITE [None]
  - JOINT SWELLING [None]
  - LACRIMATION INCREASED [None]
  - PAIN [None]
  - PNEUMONIA [None]
  - SNORING [None]
  - SURGERY [None]
  - VISION BLURRED [None]
  - WEIGHT INCREASED [None]
